FAERS Safety Report 9617714 (Version 2)
Quarter: 2013Q4

REPORT INFORMATION
  Report Type: Report from Study
  Country: MX (occurrence: MX)
  Receive Date: 20131011
  Receipt Date: 20131011
  Transmission Date: 20140711
  Serious: Yes (Hospitalization, Other)
  Sender: FDA-Public Use
  Company Number: PHHY2013MX031667

PATIENT
  Sex: Female

DRUGS (4)
  1. DIOVAN [Suspect]
     Indication: HYPERTENSION
     Dosage: 2 DF (80MG) DAILY
     Route: 048
     Dates: start: 200108, end: 200408
  2. DIOVAN [Suspect]
     Dosage: 1 DF, (80MG) DAILY
     Route: 048
  3. DIOVAN [Suspect]
     Dosage: 2 DF (80MG) DAILY
     Route: 048
     Dates: start: 200408
  4. SELOPRES ZOK [Concomitant]
     Indication: HYPERTENSION
     Dosage: 1 UKN, DAILY
     Dates: start: 200108

REACTIONS (13)
  - Hypertension [Unknown]
  - Blood calcium decreased [Not Recovered/Not Resolved]
  - Bronchial disorder [Not Recovered/Not Resolved]
  - Thyroid disorder [Not Recovered/Not Resolved]
  - Overweight [Not Recovered/Not Resolved]
  - Joint swelling [Not Recovered/Not Resolved]
  - Arthralgia [Not Recovered/Not Resolved]
  - Cough [Not Recovered/Not Resolved]
  - Ear pain [Not Recovered/Not Resolved]
  - Pain [Not Recovered/Not Resolved]
  - Malaise [Not Recovered/Not Resolved]
  - Ear disorder [Not Recovered/Not Resolved]
  - Weight decreased [Not Recovered/Not Resolved]
